FAERS Safety Report 4780351-1 (Version None)
Quarter: 2005Q3

REPORT INFORMATION
  Report Type: 
  Country: None (occurrence: None)
  Receive Date: 20050926
  Receipt Date: 20050914
  Transmission Date: 20060218
  Serious: Yes (Hospitalization, Other)
  Sender: FDA-Public Use
  Company Number: 2005129239

PATIENT
  Age: 71 Year
  Sex: Female
  Weight: 63.5036 kg

DRUGS (1)
  1. ZYRTEC [Suspect]
     Indication: MULTIPLE ALLERGIES
     Dosage: 10 MG (10 MG, 1 IN 1 D)

REACTIONS (8)
  - CHOKING [None]
  - DRUG INEFFECTIVE [None]
  - DRUG RESISTANCE [None]
  - HIATUS HERNIA [None]
  - OESOPHAGEAL DILATATION [None]
  - PELVIC FRACTURE [None]
  - RESPIRATION ABNORMAL [None]
  - SPINAL FRACTURE [None]
